FAERS Safety Report 8791555 (Version 1)
Quarter: 2012Q4

REPORT INFORMATION
  Report Type: Spontaneous
  Country: DK (occurrence: None)
  Receive Date: 20120913
  Receipt Date: 20120913
  Transmission Date: 20130627
  Serious: Yes (Disabling, Other)
  Sender: FDA-Public Use
  Company Number: 2012MA010743

PATIENT
  Sex: Male

DRUGS (2)
  1. INDAPAMIDE [Suspect]
     Indication: HYPERTENSION
     Route: 048
  2. LOSARTAN [Concomitant]

REACTIONS (3)
  - Blood pressure decreased [None]
  - Fatigue [None]
  - Asthenia [None]
